FAERS Safety Report 9614740 (Version 1)
Quarter: 2013Q4

REPORT INFORMATION
  Report Type: Spontaneous
  Country: JP (occurrence: JP)
  Receive Date: 20131011
  Receipt Date: 20131011
  Transmission Date: 20140711
  Serious: Yes (Death)
  Sender: FDA-Public Use
  Company Number: JP-ASTELLAS-2013US010500

PATIENT
  Age: 65 Year
  Sex: Female

DRUGS (6)
  1. TARCEVA [Suspect]
     Indication: LUNG ADENOCARCINOMA
     Dosage: 150 MG, UID/QD
     Route: 048
     Dates: start: 20130328, end: 20130412
  2. ROZEREM [Concomitant]
     Indication: INSOMNIA
     Dosage: 8 MG, UID/QD
     Route: 048
     Dates: start: 20130122, end: 20130412
  3. NAUZELIN [Concomitant]
     Indication: PROPHYLAXIS
     Dosage: 30 MG, TID
     Route: 048
     Dates: start: 20130116, end: 20130412
  4. GASMOTIN [Concomitant]
     Indication: PROPHYLAXIS
     Dosage: 15 MG, TID
     Route: 048
     Dates: start: 20130123, end: 20130412
  5. PROMAC                             /01312301/ [Concomitant]
     Indication: PROPHYLAXIS
     Dosage: 150 MG, BID
     Route: 048
     Dates: start: 20130130, end: 20130412
  6. LIPITOR [Concomitant]
     Indication: HYPERLIPIDAEMIA
     Dosage: 10 MG, UID/QD
     Route: 048
     Dates: end: 20130412

REACTIONS (3)
  - Septic shock [Fatal]
  - Gastrointestinal perforation [Fatal]
  - Constipation [Unknown]
